FAERS Safety Report 6486469-X (Version None)
Quarter: 2009Q4

REPORT INFORMATION
  Report Type: 
  Country: None (occurrence: None)
  Receive Date: 20091210
  Receipt Date: 20091017
  Transmission Date: 20100525
  Serious: Yes (Hospitalization)
  Sender: FDA-Public Use
  Company Number: SE-ASTRAZENECA-2009SE30865

PATIENT
  Sex: Male

DRUGS (1)
  1. ATACAND HCT [Suspect]
     Route: 048

REACTIONS (3)
  - DECREASED APPETITE [None]
  - OCULAR ICTERUS [None]
  - PYREXIA [None]
